FAERS Safety Report 9637130 (Version 4)
Quarter: 2014Q1

REPORT INFORMATION
  Report Type: Report from Study
  Country: BR (occurrence: BR)
  Receive Date: 20131022
  Receipt Date: 20140218
  Transmission Date: 20141002
  Serious: No
  Sender: FDA-Public Use
  Company Number: BR-SA-2013SA097192

PATIENT
  Age: 37 Year
  Sex: Male
  Weight: 60 kg

DRUGS (2)
  1. FABRAZYME [Suspect]
     Indication: FABRY^S DISEASE
     Route: 042
     Dates: start: 20080325, end: 20130924
  2. HYDROXYZINE [Concomitant]
     Indication: PREMEDICATION

REACTIONS (5)
  - Herpes zoster [Recovered/Resolved]
  - Back pain [Recovered/Resolved]
  - Pigmentation disorder [Recovered/Resolved]
  - Immunodeficiency [Recovered/Resolved]
  - Cough [Recovered/Resolved]
